FAERS Safety Report 5452376-4 (Version None)
Quarter: 2007Q3

REPORT INFORMATION
  Report Type: 
  Country: None (occurrence: None)
  Receive Date: 20070914
  Receipt Date: 20070902
  Transmission Date: 20080115
  Serious: Yes (Other)
  Sender: FDA-Public Use
  Company Number: GB-ROCHE-515235

PATIENT
  Age: 43 Year
  Sex: Female
  Weight: 120 kg

DRUGS (7)
  1. XENICAL [Suspect]
     Indication: OBESITY
     Route: 048
     Dates: start: 20070801
  2. INSULIN [Concomitant]
     Dosage: DOSAGE REPORTED AS 20 UNITS IN THE MORNING, 12 UNITS IN THE AFTERNOON AND 12 UNITS IN THE EVENING.
  3. 1 CONCOMITANT DRUG [Concomitant]
     Dosage: REPORTED AS LENTIS
  4. LEVOTHYROXINE SODIUM [Concomitant]
     Indication: HYPOTHYROIDISM
     Route: 048
  5. GABAPENTIN [Concomitant]
     Route: 048
  6. CO-CODAMOL [Concomitant]
     Indication: PAIN
     Dosage: REPORTED AS CO-COCODOMYL
     Route: 048
  7. 1 CONCOMITANT DRUG [Concomitant]
     Indication: BLOOD PRESSURE
     Dosage: REPORTED TO BE BLOOD PRESSURE TABLETS (PATIENT UNSURE OF NAME)
     Route: 048

REACTIONS (1)
  - DIVERTICULITIS [None]
